FAERS Safety Report 5036063-2 (Version None)
Quarter: 2006Q2

REPORT INFORMATION
  Report Type: 
  Country: None (occurrence: None)
  Receive Date: 20060601
  Receipt Date: 20060424
  Transmission Date: 20061013
  Serious: No
  Sender: FDA-Public Use
  Company Number: US200604003849

PATIENT
  Age: 58 Year
  Sex: Female
  Weight: 74.8 kg

DRUGS (5)
  1. CYMBALTA [Suspect]
     Indication: DEPRESSION
     Dosage: SEE IMAGE
     Dates: start: 20050301
  2. DIOVAN [Concomitant]
  3. XOPENEX [Concomitant]
  4. SYNTHROID [Concomitant]
  5. ATIVAN [Concomitant]

REACTIONS (12)
  - AGITATION [None]
  - BLOOD PRESSURE INCREASED [None]
  - CRYING [None]
  - DEPRESSED MOOD [None]
  - EMOTIONAL DISTRESS [None]
  - FATIGUE [None]
  - FEELING JITTERY [None]
  - INSOMNIA [None]
  - RESTLESSNESS [None]
  - SUICIDAL IDEATION [None]
  - TREMOR [None]
  - WEIGHT INCREASED [None]
